FAERS Safety Report 20255621 (Version 1)
Quarter: 2021Q4

REPORT INFORMATION
  Report Type: Spontaneous
  Country: US (occurrence: US)
  Receive Date: 20211230
  Receipt Date: 20211230
  Transmission Date: 20220303
  Serious: No
  Sender: FDA-Public Use
  Company Number: US-NOVARTISTESTPH-NVSC2021US299276

PATIENT
  Sex: Female

DRUGS (1)
  1. BACITRACIN\NEOMYCIN\POLYMYXIN B [Suspect]
     Active Substance: BACITRACIN\NEOMYCIN\POLYMYXIN B
     Indication: Product used for unknown indication
     Route: 047

REACTIONS (1)
  - Foreign body sensation in eyes [Unknown]
